FAERS Safety Report 12607732 (Version 1)
Quarter: 2016Q3

REPORT INFORMATION
  Report Type: Spontaneous
  Country: US (occurrence: US)
  Receive Date: 20160729
  Receipt Date: 20160729
  Transmission Date: 20161109
  Serious: Yes (Hospitalization)
  Sender: FDA-Public Use
  Company Number: US-TEVA-680611USA

PATIENT
  Age: 56 Year
  Sex: Female

DRUGS (1)
  1. CAMILA [Suspect]
     Active Substance: NORETHINDRONE

REACTIONS (3)
  - Liver function test increased [Not Recovered/Not Resolved]
  - Product identification number issue [Unknown]
  - Blood pressure increased [Unknown]

NARRATIVE: CASE EVENT DATE: 2015
